FAERS Safety Report 18558977 (Version 1)
Quarter: 2020Q4

REPORT INFORMATION
  Report Type: Spontaneous
  Country: US (occurrence: US)
  Receive Date: 20201125
  Receipt Date: 20201125
  Transmission Date: 20210114
  Serious: No
  Sender: FDA-Public Use
  Company Number: None

PATIENT
  Age: 19 Year
  Sex: Male
  Weight: 83.25 kg

DRUGS (1)
  1. MENS MITCHUM ADVANCED INVISIBLE ROLL-ON ANTIPERSPIRANT DEODORANT [Suspect]
     Active Substance: ALUMINUM ZIRCONIUM TETRACHLOROHYDREX GLY
     Dates: start: 20201125, end: 20201125

REACTIONS (2)
  - Product odour abnormal [None]
  - Product label issue [None]

NARRATIVE: CASE EVENT DATE: 20201125
